FAERS Safety Report 17966014 (Version 1)
Quarter: 2020Q2

REPORT INFORMATION
  Report Type: Spontaneous
  Country: US (occurrence: US)
  Receive Date: 20200630
  Receipt Date: 20200630
  Transmission Date: 20200714
  Serious: Yes (Hospitalization, Other)
  Sender: FDA-Public Use
  Company Number: US-GLAXOSMITHKLINE-US2020GSK105033

PATIENT
  Age: 55 Year
  Sex: Male

DRUGS (5)
  1. TRIAMCINOLONE ACETONIDE. [Interacting]
     Active Substance: TRIAMCINOLONE ACETONIDE
     Dosage: INJECTION
     Route: 014
  2. FLUTICASONE. [Suspect]
     Active Substance: FLUTICASONE
     Indication: NASAL CONGESTION
     Dosage: UNK
  3. TRIAMCINOLONE ACETONIDE. [Interacting]
     Active Substance: TRIAMCINOLONE ACETONIDE
     Indication: SYNOVIAL CYST
     Dosage: INJECTION
     Route: 014
  4. STRIBILD [Interacting]
     Active Substance: COBICISTAT\ELVITEGRAVIR\EMTRICITABINE\TENOFOVIR DISOPROXIL FUMARATE
     Indication: ANTIRETROVIRAL THERAPY
     Dosage: UNK
  5. GENVOYA [Interacting]
     Active Substance: COBICISTAT\ELVITEGRAVIR\EMTRICITABINE\TENOFOVIR ALAFENAMIDE FUMARATE
     Indication: ANTIRETROVIRAL THERAPY
     Dosage: UNK

REACTIONS (14)
  - Skin ulcer [Unknown]
  - Cushingoid [Recovering/Resolving]
  - Deep vein thrombosis [Unknown]
  - Skin striae [Recovering/Resolving]
  - Pulmonary embolism [Unknown]
  - Contusion [Unknown]
  - Weight increased [Unknown]
  - Localised infection [Unknown]
  - Hypothalamic pituitary adrenal axis suppression [Unknown]
  - Drug screen positive [Unknown]
  - Drug interaction [Unknown]
  - Cushing^s syndrome [Unknown]
  - Dyspnoea [Unknown]
  - Plethoric face [Recovering/Resolving]
